FAERS Safety Report 4721556-5 (Version None)
Quarter: 2005Q3

REPORT INFORMATION
  Report Type: 
  Country: None (occurrence: None)
  Receive Date: 20050721
  Receipt Date: 20041123
  Transmission Date: 20060218
  Serious: Yes (Other)
  Sender: FDA-Public Use
  Company Number: US-BRISTOL-MYERS SQUIBB COMPANY-12773727

PATIENT
  Age: 59 Year
  Sex: Female
  Weight: 68 kg

DRUGS (5)
  1. COUMADIN [Suspect]
     Indication: HEART VALVE REPLACEMENT
     Dosage: DOSE: 7.5 MILLIGRAMS DAILY, EXCEPT FOR 5 MILLIGRAM ON SUNDAYS
  2. LOVENOX [Concomitant]
  3. CELEBREX [Concomitant]
  4. NORVASC [Concomitant]
  5. PAXIL [Concomitant]

REACTIONS (1)
  - INTERNATIONAL NORMALISED RATIO DECREASED [None]
